FAERS Safety Report 5865205-1 (Version None)
Quarter: 2008Q3

REPORT INFORMATION
  Report Type: 
  Country: None (occurrence: None)
  Receive Date: 20080829
  Receipt Date: 20080821
  Transmission Date: 20090109
  Serious: Yes (Hospitalization)
  Sender: FDA-Public Use
  Company Number: B0530465A

PATIENT
  Age: 66 Year
  Sex: Male

DRUGS (8)
  1. VALTREX [Suspect]
     Indication: HERPES ZOSTER
     Dosage: 1000MG THREE TIMES PER DAY
     Route: 048
     Dates: start: 20080711, end: 20080715
  2. MAGMITT [Concomitant]
     Indication: CONSTIPATION
     Route: 048
     Dates: start: 20060901
  3. URSO 250 [Concomitant]
     Indication: CHOLELITHIASIS
     Dosage: 300MG PER DAY
     Route: 048
     Dates: start: 20060901
  4. GASMOTIN [Concomitant]
     Indication: GASTRITIS
     Dosage: 15MG PER DAY
     Route: 048
     Dates: start: 20060901
  5. UNKNOWN [Concomitant]
     Indication: BENIGN PROSTATIC HYPERPLASIA
     Dosage: .2MG PER DAY
     Route: 048
     Dates: start: 20060901
  6. SHINLUCK [Concomitant]
     Indication: CONSTIPATION
     Dosage: 5MG PER DAY
     Route: 048
     Dates: start: 20060901
  7. ROHYPNOL [Concomitant]
     Indication: INSOMNIA
     Dosage: 1MG PER DAY
     Route: 048
     Dates: start: 20060901, end: 20080716
  8. UNKNOWN [Concomitant]
     Indication: INSOMNIA
     Dosage: 1MG PER DAY
     Route: 048
     Dates: start: 20060901, end: 20080716

REACTIONS (4)
  - ALTERED STATE OF CONSCIOUSNESS [None]
  - ANURIA [None]
  - RENAL FAILURE ACUTE [None]
  - STUPOR [None]
